FAERS Safety Report 9753247 (Version 2)
Quarter: 2013Q4

REPORT INFORMATION
  Report Type: Spontaneous
  Country: US (occurrence: US)
  Receive Date: 20131213
  Receipt Date: 20131213
  Transmission Date: 20140711
  Serious: No
  Sender: FDA-Public Use
  Company Number: US-GILEAD-2010-0026956

PATIENT
  Sex: Female
  Weight: 51.26 kg

DRUGS (14)
  1. LETAIRIS [Suspect]
     Indication: PULMONARY ARTERIAL HYPERTENSION
     Route: 048
     Dates: start: 20090212
  2. COUMADIN [Concomitant]
  3. WARFARIN [Concomitant]
  4. TORSEMIDE [Concomitant]
  5. COREG [Concomitant]
  6. DIGOXIN [Concomitant]
  7. MIDODRINE [Concomitant]
  8. METOLAZONE [Concomitant]
  9. TETRACYCLINE [Concomitant]
  10. PROTONIX [Concomitant]
  11. AMBIEN [Concomitant]
  12. KLOR-CON [Concomitant]
  13. POT CHLORIDE [Concomitant]
  14. FOLIC ACID [Concomitant]

REACTIONS (1)
  - Platelet disorder [Unknown]
